FAERS Safety Report 7859964-6 (Version None)
Quarter: 2011Q4

REPORT INFORMATION
  Report Type: 
  Country: None (occurrence: None)
  Receive Date: 20111025
  Receipt Date: 20111017
  Transmission Date: 20120403
  Serious: Yes (Death)
  Sender: FDA-Public Use
  Company Number: 2011100043

PATIENT
  Age: 54 Year
  Sex: Female

DRUGS (15)
  1. ONSOLIS [Suspect]
  2. CITALOPRAM HYDROBROMIDE [Concomitant]
  3. CYMBALTA [Concomitant]
  4. ONSOLIS [Suspect]
     Indication: CANCER PAIN
     Dosage: SEE IMAGE
     Route: 002
     Dates: start: 20100304, end: 20100520
  5. ONSOLIS [Suspect]
     Indication: CANCER PAIN
     Dosage: SEE IMAGE
     Route: 002
     Dates: start: 20100129, end: 20100303
  6. ONSOLIS [Suspect]
     Indication: CANCER PAIN
     Dosage: SEE IMAGE
     Route: 002
     Dates: start: 20100521, end: 20100501
  7. PRILOSEC [Concomitant]
  8. ZOFRAN [Concomitant]
  9. PERCOCET [Concomitant]
  10. OXYCONTIN [Concomitant]
  11. NEURONTIN [Concomitant]
  12. ABILIFY [Concomitant]
  13. COUMADIN [Concomitant]
  14. PREVACID [Concomitant]
  15. TOPROL-XL [Concomitant]

REACTIONS (1)
  - DEATH [None]
